FAERS Safety Report 23784631 (Version 1)
Quarter: 2024Q2

REPORT INFORMATION
  Report Type: Spontaneous
  Country: US (occurrence: None)
  Receive Date: 20240425
  Receipt Date: 20240425
  Transmission Date: 20240716
  Serious: Yes (Hospitalization)
  Sender: FDA-Public Use
  Company Number: None

PATIENT
  Age: 41 Year
  Sex: Female
  Weight: 67.9 kg

DRUGS (1)
  1. CYTARABINE [Suspect]
     Active Substance: CYTARABINE
     Dates: end: 20231226

REACTIONS (4)
  - Transfusion related complication [None]
  - Chills [None]
  - Febrile neutropenia [None]
  - Headache [None]

NARRATIVE: CASE EVENT DATE: 20240102
